FAERS Safety Report 14363219 (Version 1)
Quarter: 2018Q1

REPORT INFORMATION
  Report Type: Spontaneous
  Country: IN (occurrence: IN)
  Receive Date: 20180105
  Receipt Date: 20180105
  Transmission Date: 20180509
  Serious: No
  Sender: FDA-Public Use
  Company Number: None

PATIENT
  Age: 24 Year
  Sex: Male
  Weight: 50 kg

DRUGS (1)
  1. NICOTEX, 4 MG CIPLA [Suspect]
     Active Substance: NICOTINE

REACTIONS (1)
  - Back pain [None]

NARRATIVE: CASE EVENT DATE: 201801
